FAERS Safety Report 15009997 (Version 1)
Quarter: 2018Q2

REPORT INFORMATION
  Report Type: Spontaneous
  Country: US (occurrence: US)
  Receive Date: 20180614
  Receipt Date: 20180614
  Transmission Date: 20180711
  Serious: No
  Sender: FDA-Public Use
  Company Number: US-PFIZER INC-2018238890

PATIENT
  Age: 60 Year
  Sex: Male
  Weight: 68 kg

DRUGS (1)
  1. CAVERJECT [Suspect]
     Active Substance: ALPROSTADIL
     Indication: ERECTILE DYSFUNCTION
     Dosage: 20 UG, AS NEEDED

REACTIONS (3)
  - Incorrect dose administered [Unknown]
  - Drug ineffective [Unknown]
  - Product quality issue [Unknown]

NARRATIVE: CASE EVENT DATE: 20180607
